FAERS Safety Report 17878524 (Version 2)
Quarter: 2020Q3

REPORT INFORMATION
  Report Type: Spontaneous
  Country: PL (occurrence: PL)
  Receive Date: 20200610
  Receipt Date: 20200706
  Transmission Date: 20201103
  Serious: Yes (Other)
  Sender: FDA-Public Use
  Company Number: PL-TEVA-2020-PL-1247167

PATIENT
  Age: 70 Year
  Sex: Female

DRUGS (11)
  1. DOXORUBICIN [Suspect]
     Active Substance: DOXORUBICIN
     Indication: BREAST CANCER FEMALE
     Route: 065
     Dates: start: 201508, end: 201512
  2. ZOLEDRONIC ACID [Suspect]
     Active Substance: ZOLEDRONIC ACID
     Route: 042
     Dates: start: 201508
  3. CYCLOPHOSPHAMIDE. [Suspect]
     Active Substance: CYCLOPHOSPHAMIDE
     Indication: BREAST CANCER FEMALE
     Route: 065
     Dates: start: 201508, end: 201512
  4. ACETAMINOPHEN WITH PROLONGED ACTION [Concomitant]
     Indication: SPINAL PAIN
  5. PACLITAXEL. [Suspect]
     Active Substance: PACLITAXEL
     Indication: BREAST CANCER FEMALE
     Dosage: 4 CYCLES: DOXORUBICIN + CYCLOPHOSPHAMIDE
     Route: 065
     Dates: start: 201508, end: 201512
  6. FLUOROURACIL. [Suspect]
     Active Substance: FLUOROURACIL
     Indication: BREAST CANCER FEMALE
     Route: 065
     Dates: end: 201512
  7. MIDODRIN [Concomitant]
     Indication: ORTHOSTATIC HYPOTENSION
     Dosage: 2.5 MILLIGRAM DAILY;
  8. IRON [Concomitant]
     Active Substance: IRON
  9. FOLIC ACID. [Concomitant]
     Active Substance: FOLIC ACID
  10. TRAMADOL. [Concomitant]
     Active Substance: TRAMADOL
     Indication: SPINAL PAIN
  11. CACIUM [Concomitant]

REACTIONS (4)
  - Osteonecrosis of jaw [Unknown]
  - Neutropenia [Unknown]
  - Anaemia [Unknown]
  - Atrial fibrillation [Unknown]
